FAERS Safety Report 10403784 (Version 1)
Quarter: 2014Q3

REPORT INFORMATION
  Report Type: Spontaneous
  Country: GB (occurrence: GB)
  Receive Date: 20140822
  Receipt Date: 20140822
  Transmission Date: 20150326
  Serious: Yes (Congenital Anomaly, Other)
  Sender: FDA-Public Use
  Company Number: GB-BAUSCH-BL-2014-003793

PATIENT
  Age: 0 Day
  Sex: Female
  Weight: 3.8 kg

DRUGS (4)
  1. CYCLOGEST [Suspect]
     Active Substance: PROGESTERONE
     Indication: IMMUNE SYSTEM DISORDER
     Route: 064
  2. INTRALIPID [Suspect]
     Active Substance: EGG PHOSPHOLIPIDS\GLYCERIN\SOYBEAN OIL
     Indication: IMMUNE SYSTEM DISORDER
     Route: 064
  3. PREDNISOLONE. [Suspect]
     Active Substance: PREDNISOLONE
     Indication: IMMUNE SYSTEM DISORDER
     Route: 064
  4. REPEVAX [Suspect]
     Active Substance: DIPHTHERIA AND TETANUS TOXOIDS AND ACELLULAR PERTUSSIS ADSORBED AND INACTIVATED POLIOVIRUS VACCINE
     Indication: IMMUNISATION
     Route: 064
     Dates: start: 20140219, end: 20140219

REACTIONS (2)
  - Foetal exposure during pregnancy [Unknown]
  - VIIth nerve paralysis [Recovering/Resolving]

NARRATIVE: CASE EVENT DATE: 20140521
